FAERS Safety Report 11857748 (Version 1)
Quarter: 2015Q4

REPORT INFORMATION
  Report Type: Spontaneous
  Country: GB (occurrence: None)
  Receive Date: 20151221
  Receipt Date: 20151221
  Transmission Date: 20160305
  Serious: Yes (Death)
  Sender: FDA-Public Use
  Company Number: GB2015K7810SPO

PATIENT
  Age: 11 Year
  Sex: Female

DRUGS (2)
  1. LANSOPRAZOLE WORLD (LANSOPRAZOLE) UNKNOWN [Suspect]
     Active Substance: LANSOPRAZOLE
     Route: 048
  2. BCG (BACILLUS CALMETTE GUERIN) [Concomitant]

REACTIONS (5)
  - Abdominal pain upper [None]
  - Lip discolouration [None]
  - Histiocytosis haematophagic [None]
  - Lip swelling [None]
  - Acute hepatic failure [None]
